APPROVED DRUG PRODUCT: FEXOFENADINE HYDROCHLORIDE HIVES
Active Ingredient: FEXOFENADINE HYDROCHLORIDE
Strength: 180MG
Dosage Form/Route: TABLET;ORAL
Application: A079112 | Product #005
Applicant: WOCKHARDT LTD
Approved: Feb 8, 2012 | RLD: No | RS: No | Type: OTC